FAERS Safety Report 8713253 (Version 2)
Quarter: 2012Q4

REPORT INFORMATION
  Report Type: 
  Country: US (occurrence: US)
  Receive Date: 20120808
  Receipt Date: 20121227
  Transmission Date: 20130627
  Serious: No
  Sender: FDA-Public Use
  Company Number: US-ASTRAZENECA-2012SE54122

PATIENT
  Age: 61 Year
  Sex: Male
  Weight: 191 kg

DRUGS (5)
  1. SEROQUEL [Suspect]
     Indication: AFFECTIVE DISORDER
     Route: 048
     Dates: end: 201204
  2. SEROQUEL [Suspect]
     Indication: AFFECTIVE DISORDER
     Dosage: GENERIC
     Route: 048
     Dates: start: 201204, end: 201210
  3. LOSARTAN [Concomitant]
     Indication: HYPERTENSION
  4. ATENOLOL [Concomitant]
     Indication: HYPERTENSION
  5. CLONAZEPAM [Concomitant]
     Indication: ANXIETY

REACTIONS (4)
  - Flushing [Unknown]
  - Blood pressure increased [Unknown]
  - Mental disorder [Unknown]
  - Drug ineffective [Unknown]
